FAERS Safety Report 9457845 (Version 1)
Quarter: 2013Q3

REPORT INFORMATION
  Report Type: Spontaneous
  Country: DE (occurrence: DE)
  Receive Date: 20130814
  Receipt Date: 20130814
  Transmission Date: 20140515
  Serious: Yes (Hospitalization, Other)
  Sender: FDA-Public Use
  Company Number: DE-BAUSCH-BL-2013-004543

PATIENT
  Sex: Male
  Weight: 60 kg

DRUGS (1)
  1. DORZOLAMIDE [Suspect]
     Indication: GLAUCOMA
     Route: 047
     Dates: start: 2011

REACTIONS (2)
  - Polyneuropathy [Not Recovered/Not Resolved]
  - Prostatic specific antigen increased [Unknown]
